FAERS Safety Report 9532036 (Version 1)
Quarter: 2013Q3

REPORT INFORMATION
  Report Type: Spontaneous
  Country: NL (occurrence: NL)
  Receive Date: 20130918
  Receipt Date: 20130918
  Transmission Date: 20140515
  Serious: Yes (Other)
  Sender: FDA-Public Use
  Company Number: NL-PFIZER INC-2013268578

PATIENT
  Age: 75 Year
  Sex: Male

DRUGS (3)
  1. AMIODARONE HCL [Suspect]
     Indication: ARRHYTHMIA
     Dosage: 200 MG, DAILY
     Route: 048
     Dates: end: 201308
  2. ACENOCOUMAROL [Concomitant]
     Dosage: 1 MG, UNK
  3. THYRAX [Concomitant]
     Dosage: UNK
     Dates: start: 201211

REACTIONS (4)
  - Sense of oppression [Unknown]
  - Listless [Unknown]
  - Fibrosis [Unknown]
  - Cough [Unknown]
